FAERS Safety Report 18331313 (Version 45)
Quarter: 2025Q2

REPORT INFORMATION
  Report Type: Report from Study
  Country: US (occurrence: US)
  Receive Date: 20200930
  Receipt Date: 20250418
  Transmission Date: 20250717
  Serious: Yes (Hospitalization, Other)
  Sender: TAKEDA
  Company Number: US-SHIRE-US202031692

PATIENT
  Age: 77 Year
  Sex: Male
  Weight: 83 kg

DRUGS (64)
  1. HUMAN IMMUNOGLOBULIN G\HYALURONIDASE RECOMBINANT HUMAN [Suspect]
     Active Substance: HUMAN IMMUNOGLOBULIN G\HYALURONIDASE (HUMAN RECOMBINANT)
     Indication: Immunodeficiency common variable
     Dosage: 60 GRAM, Q4WEEKS
     Dates: start: 20151217
  2. ARICEPT [Suspect]
     Active Substance: DONEPEZIL HYDROCHLORIDE
  3. ACETAMINOPHEN [Concomitant]
     Active Substance: ACETAMINOPHEN
  4. SODIUM CHLORIDE [Concomitant]
     Active Substance: SODIUM CHLORIDE
  5. DIPHENHYDRAMINE [Concomitant]
     Active Substance: DIPHENHYDRAMINE
  6. EPINEPHRINE [Concomitant]
     Active Substance: EPINEPHRINE
  7. ZYRTEC [Concomitant]
     Active Substance: CETIRIZINE HYDROCHLORIDE
  8. NAPROXEN [Concomitant]
     Active Substance: NAPROXEN
  9. KETOROLAC [Concomitant]
     Active Substance: KETOROLAC TROMETHAMINE
  10. ATIVAN [Concomitant]
     Active Substance: LORAZEPAM
  11. AMOXICILLIN [Concomitant]
     Active Substance: AMOXICILLIN
  12. MUCINEX [Concomitant]
     Active Substance: GUAIFENESIN
  13. GABAPENTIN [Concomitant]
     Active Substance: GABAPENTIN
  14. WELLBUTRIN [Concomitant]
     Active Substance: BUPROPION HYDROCHLORIDE
  15. ALLEGRA [Concomitant]
     Active Substance: FEXOFENADINE HYDROCHLORIDE
  16. NORVASC [Concomitant]
     Active Substance: AMLODIPINE BESYLATE
  17. LIPITOR [Concomitant]
     Active Substance: ATORVASTATIN CALCIUM
  18. VENTOLIN [Concomitant]
     Active Substance: ALBUTEROL SULFATE
  19. VITAMIN B12 [Concomitant]
     Active Substance: CYANOCOBALAMIN
  20. COZAAR [Concomitant]
     Active Substance: LOSARTAN POTASSIUM
  21. ZANTAC [Concomitant]
     Active Substance: RANITIDINE HYDROCHLORIDE
  22. ASPIRIN [Concomitant]
     Active Substance: ASPIRIN
  23. PERCOCET [Concomitant]
     Active Substance: ACETAMINOPHEN\OXYCODONE HYDROCHLORIDE
  24. CYMBALTA [Concomitant]
     Active Substance: DULOXETINE HYDROCHLORIDE
  25. PRAVASTATIN [Concomitant]
     Active Substance: PRAVASTATIN
  26. TROMETHAMINE [Concomitant]
     Active Substance: TROMETHAMINE
  27. SYSTANE (HYPROMELLOSE 2910 (4000 MPA.S)) [Concomitant]
     Active Substance: HYPROMELLOSE 2910 (4000 MPA.S)
  28. FLONASE [Concomitant]
     Active Substance: FLUTICASONE PROPIONATE
  29. BUPROPION [Concomitant]
     Active Substance: BUPROPION
  30. BACLOFEN [Concomitant]
     Active Substance: BACLOFEN
  31. TRAZODONE [Concomitant]
     Active Substance: TRAZODONE HYDROCHLORIDE
  32. DOCUSATE SODIUM [Concomitant]
     Active Substance: DOCUSATE SODIUM
  33. FAMOTIDINE [Concomitant]
     Active Substance: FAMOTIDINE
  34. MINERALS\VITAMINS [Concomitant]
     Active Substance: MINERALS\VITAMINS
  35. POLYETHYLENE GLYCOL [Concomitant]
     Active Substance: POLYETHYLENE GLYCOL
  36. VITAMIN B [Concomitant]
     Active Substance: VITAMIN B
  37. MELATONIN [Concomitant]
     Active Substance: MELATONIN
  38. TRIAMCINOLONE ACETONIDE [Concomitant]
     Active Substance: TRIAMCINOLONE ACETONIDE
  39. ALBUTEROL SULFATE [Concomitant]
     Active Substance: ALBUTEROL SULFATE
  40. BUPROPION HYDROCHLORIDE [Concomitant]
     Active Substance: BUPROPION HYDROCHLORIDE
  41. TRAZODONE HCL [Concomitant]
     Active Substance: TRAZODONE HYDROCHLORIDE
  42. LORATADINE [Concomitant]
     Active Substance: LORATADINE
  43. METOPROLOL SUCCINATE [Concomitant]
     Active Substance: METOPROLOL SUCCINATE
  44. MEMANTINE [Concomitant]
     Active Substance: MEMANTINE
  45. VITAMIN D3 [Concomitant]
     Active Substance: CHOLECALCIFEROL
  46. BISACODYL [Concomitant]
     Active Substance: BISACODYL
  47. TUSSIN DM [Concomitant]
     Active Substance: DEXTROMETHORPHAN HYDROBROMIDE\GUAIFENESIN
  48. KETOCONAZOLE [Concomitant]
     Active Substance: KETOCONAZOLE
  49. Kerasol [Concomitant]
  50. LIDOCAINE [Concomitant]
     Active Substance: LIDOCAINE
  51. Propionate [Concomitant]
  52. GEMTESA [Concomitant]
     Active Substance: VIBEGRON
  53. FLUTICASONE PROPIONATE [Concomitant]
     Active Substance: FLUTICASONE PROPIONATE
  54. METOPROLOL [Concomitant]
     Active Substance: METOPROLOL
  55. DIPHENHYDRAMINE HYDROCHLORIDE [Concomitant]
     Active Substance: DIPHENHYDRAMINE HYDROCHLORIDE
     Indication: Product used for unknown indication
  56. MIRTAZAPINE [Concomitant]
     Active Substance: MIRTAZAPINE
  57. SEROQUEL [Concomitant]
     Active Substance: QUETIAPINE FUMARATE
  58. ZOLOFT [Concomitant]
     Active Substance: SERTRALINE HYDROCHLORIDE
  59. ZYPREXA [Concomitant]
     Active Substance: OLANZAPINE
  60. SERTRALINE [Concomitant]
     Active Substance: SERTRALINE HYDROCHLORIDE
  61. RISPERIDONE [Concomitant]
     Active Substance: RISPERIDONE
  62. ATORVASTATIN CALCIUM [Concomitant]
     Active Substance: ATORVASTATIN CALCIUM
  63. AMLODIPINE BESYLATE [Concomitant]
     Active Substance: AMLODIPINE BESYLATE
  64. SODIUM CHLORIDE [Concomitant]
     Active Substance: SODIUM CHLORIDE

REACTIONS (41)
  - Heart rate irregular [Unknown]
  - Dementia Alzheimer^s type [Unknown]
  - Cellulitis [Unknown]
  - Behaviour disorder [Unknown]
  - Heart rate decreased [Unknown]
  - Sinusitis [Unknown]
  - Memory impairment [Unknown]
  - Fall [Unknown]
  - Injection site discharge [Unknown]
  - Injection site reaction [Recovered/Resolved]
  - Peripheral swelling [Unknown]
  - Joint injury [Unknown]
  - Skin laceration [Not Recovered/Not Resolved]
  - Inguinal hernia [Unknown]
  - Skin abrasion [Unknown]
  - Joint swelling [Unknown]
  - Nasopharyngitis [Recovering/Resolving]
  - Upper respiratory tract infection [Unknown]
  - Spinal disorder [Unknown]
  - Neck pain [Unknown]
  - Infusion site rash [Unknown]
  - Infusion related reaction [Unknown]
  - Contusion [Unknown]
  - Injection site erythema [Unknown]
  - Mental status changes [Unknown]
  - Inappropriate schedule of product administration [Unknown]
  - Breakthrough pain [Unknown]
  - Dyspepsia [Unknown]
  - Injection site pruritus [Unknown]
  - Injection site pain [Unknown]
  - Injection site swelling [Unknown]
  - Dizziness [Unknown]
  - Urticaria [Recovered/Resolved]
  - Rash [Unknown]
  - Arthralgia [Unknown]
  - Infusion site swelling [Unknown]
  - Infusion site erythema [Unknown]
  - Dyspnoea [Unknown]
  - Infusion site pruritus [Unknown]
  - Erythema [Unknown]
  - Hypertension [Recovered/Resolved]

NARRATIVE: CASE EVENT DATE: 20210104
